FAERS Safety Report 8395767-4 (Version None)
Quarter: 2012Q2

REPORT INFORMATION
  Report Type: 
  Country: None (occurrence: None)
  Receive Date: 20120530
  Receipt Date: 20120524
  Transmission Date: 20120825
  Serious: Yes (Other)
  Sender: FDA-Public Use
  Company Number: JP-ROCHE-1071821

PATIENT
  Sex: Male

DRUGS (5)
  1. XELODA [Suspect]
     Indication: GASTRIC CANCER RECURRENT
     Dosage: DOSAGE IS UNCERTAIN.
     Route: 048
  2. CISPLATIN [Suspect]
     Dosage: DOSAGE IS UNCERTAIN.
     Route: 041
  3. XELODA [Suspect]
     Dosage: DOSAGE IS UNCERTAIN.
     Route: 048
  4. HERCEPTIN [Suspect]
     Indication: GASTRIC CANCER RECURRENT
     Dosage: DOSAGE IS UNCERTAIN.
     Route: 041
  5. CISPLATIN [Suspect]
     Indication: GASTRIC CANCER RECURRENT
     Dosage: DOSAGE IS UNCERTAIN.
     Route: 041

REACTIONS (1)
  - BLOOD CREATININE INCREASED [None]
